FAERS Safety Report 4282647-9 (Version None)
Quarter: 2004Q1

REPORT INFORMATION
  Report Type: 
  Country: None (occurrence: None)
  Receive Date: 20040130
  Receipt Date: 20030115
  Transmission Date: 20041129
  Serious: No
  Sender: FDA-Public Use
  Company Number: US-BRISTOL-MYERS SQUIBB COMPANY-12159372

PATIENT
  Age: 53 Year
  Sex: Female
  Weight: 81 kg

DRUGS (9)
  1. SERZONE [Suspect]
     Indication: DEPRESSION
     Route: 048
     Dates: start: 20030114, end: 20030114
  2. SERZONE [Suspect]
     Indication: INSOMNIA
     Route: 048
     Dates: start: 20030114, end: 20030114
  3. EFFEXOR XR [Concomitant]
  4. TOPAMAX [Concomitant]
  5. TRAZODONE HCL [Concomitant]
  6. HYDROCHLOROTHIAZIDE [Concomitant]
  7. CLARITIN [Concomitant]
  8. ADVIL [Concomitant]
  9. MULTIVITAMIN [Concomitant]

REACTIONS (5)
  - CRYING [None]
  - DISTURBANCE IN ATTENTION [None]
  - DRUG INEFFECTIVE [None]
  - FLIGHT OF IDEAS [None]
  - MANIA [None]
